FAERS Safety Report 4978404-8 (Version None)
Quarter: 2006Q2

REPORT INFORMATION
  Report Type: 
  Country: None (occurrence: None)
  Receive Date: 20060417
  Receipt Date: 20060405
  Transmission Date: 20061013
  Serious: Yes (Other)
  Sender: FDA-Public Use
  Company Number: GXKR2006GB01952

PATIENT
  Age: 65 Year
  Sex: Male

DRUGS (8)
  1. CEFTAZIDIME [Suspect]
     Dosage: 2 G, BID, INTRAVENOUS
     Route: 042
  2. CEFUROXIME [Suspect]
     Dosage: 1.5 G, TID, INTRAVENOUS
     Route: 042
  3. INSULIN (INSULIN) [Concomitant]
  4. METFORMIN [Concomitant]
  5. RAMIPRIL [Concomitant]
  6. INDAPAMIDE [Concomitant]
  7. GABAPENTIN [Concomitant]
  8. ALLOPURINOL [Concomitant]

REACTIONS (4)
  - CONFUSIONAL STATE [None]
  - MYOCLONUS [None]
  - PNEUMONIA ASPIRATION [None]
  - SYNCOPE [None]
